FAERS Safety Report 21572845 (Version 3)
Quarter: 2023Q4

REPORT INFORMATION
  Report Type: Spontaneous
  Country: US (occurrence: US)
  Receive Date: 20221109
  Receipt Date: 20231030
  Transmission Date: 20240110
  Serious: No
  Sender: FDA-Public Use
  Company Number: US-PFIZER INC-PV202200099181

PATIENT
  Age: 78 Year
  Sex: Female

DRUGS (2)
  1. XELJANZ XR [Suspect]
     Active Substance: TOFACITINIB CITRATE
     Dosage: 11 MG, 1X/DAY (TAKE 1 TABLET BY MOUTH DAILY AS DIRECTED BY PHYSICIAN ORALLY ONCE A DAY 90 DAYS)
     Route: 048
     Dates: start: 202205
  2. METHOTREXATE SODIUM [Suspect]
     Active Substance: METHOTREXATE SODIUM
     Dosage: 15 MG
     Route: 058

REACTIONS (4)
  - Mean cell volume increased [Unknown]
  - Alopecia [Unknown]
  - Pain [Unknown]
  - Drug hypersensitivity [Unknown]
